FAERS Safety Report 6404822-7 (Version None)
Quarter: 2009Q4

REPORT INFORMATION
  Report Type: 
  Country: None (occurrence: None)
  Receive Date: 20091016
  Receipt Date: 20091008
  Transmission Date: 20100525
  Serious: Yes (Other)
  Sender: FDA-Public Use
  Company Number: US-GENENTECH-292009

PATIENT
  Age: 3 Year
  Sex: Female

DRUGS (1)
  1. AVASTIN [Suspect]
     Indication: NEUROECTODERMAL NEOPLASM
     Dosage: 10 MG/KG, X1
     Route: 042
     Dates: start: 20091006, end: 20091006

REACTIONS (1)
  - DISEASE PROGRESSION [None]
